FAERS Safety Report 24102041 (Version 2)
Quarter: 2024Q3

REPORT INFORMATION
  Report Type: Spontaneous
  Country: JP (occurrence: JP)
  Receive Date: 20240717
  Receipt Date: 20240722
  Transmission Date: 20241017
  Serious: Yes (Other)
  Sender: SANOFI AVENTIS
  Company Number: JP-SA-2024SA194989

PATIENT
  Age: 60 Year

DRUGS (1)
  1. REZUROCK [Suspect]
     Active Substance: BELUMOSUDIL
     Dosage: UNK
     Route: 048

REACTIONS (3)
  - Leukaemia recurrent [Unknown]
  - Pleurisy [Unknown]
  - Platelet count decreased [Unknown]
